FAERS Safety Report 10310241 (Version 1)
Quarter: 2014Q3

REPORT INFORMATION
  Report Type: Spontaneous
  Country: US (occurrence: None)
  Receive Date: 20140716
  Receipt Date: 20140716
  Transmission Date: 20150326
  Serious: Yes (Life-Threatening, Hospitalization, Disabling)
  Sender: FDA-Public Use
  Company Number: None

PATIENT
  Age: 66 Year
  Sex: Male
  Weight: 78.47 kg

DRUGS (5)
  1. AFITOR [Concomitant]
  2. MULTI VITAMIN [Concomitant]
     Active Substance: VITAMINS
  3. ASPIRIN. [Concomitant]
     Active Substance: ASPIRIN
  4. REMICADE [Suspect]
     Active Substance: INFLIXIMAB
     Indication: H1N1 INFLUENZA
     Dosage: INGESTION
     Dates: start: 200911, end: 201005
  5. REMICADE [Suspect]
     Active Substance: INFLIXIMAB
     Indication: RHEUMATOID ARTHRITIS
     Dosage: INGESTION
     Dates: start: 200911, end: 201005

REACTIONS (1)
  - Hepatic mass [None]

NARRATIVE: CASE EVENT DATE: 201005
